FAERS Safety Report 6710578-0 (Version None)
Quarter: 2010Q2

REPORT INFORMATION
  Report Type: 
  Country: None (occurrence: None)
  Receive Date: 20100430
  Receipt Date: 20100422
  Transmission Date: 20101027
  Serious: Yes (Other)
  Sender: FDA-Public Use
  Company Number: 2010AL001841

PATIENT
  Age: 67 Year
  Sex: Male

DRUGS (3)
  1. HYDROCORTISONE CREAM                (HYDROCORTISONE CREAM) [Suspect]
  2. REMICADE [Concomitant]
  3. CHLORPHENAMINE [Concomitant]

REACTIONS (4)
  - BLOOD PRESSURE DECREASED [None]
  - BRADYCARDIA [None]
  - MALAISE [None]
  - PALLOR [None]
